FAERS Safety Report 15482863 (Version 2)
Quarter: 2019Q1

REPORT INFORMATION
  Report Type: Spontaneous
  Country: US (occurrence: US)
  Receive Date: 20181010
  Receipt Date: 20190115
  Transmission Date: 20190417
  Serious: No
  Sender: FDA-Public Use
  Company Number: US-SA-2018SA278422

PATIENT
  Age: 59 Year
  Sex: Female

DRUGS (3)
  1. PROGESTERONE. [Concomitant]
     Active Substance: PROGESTERONE
  2. ESTRADIOL. [Concomitant]
     Active Substance: ESTRADIOL
  3. DUPIXENT [Suspect]
     Active Substance: DUPILUMAB
     Indication: DERMATITIS ATOPIC
     Dosage: 300 MG, QOW
     Route: 058
     Dates: start: 20180510

REACTIONS (1)
  - Rash [Recovered/Resolved]
